FAERS Safety Report 4759479-8 (Version None)
Quarter: 2005Q3

REPORT INFORMATION
  Report Type: 
  Country: None (occurrence: None)
  Receive Date: 20050826
  Receipt Date: 20050719
  Transmission Date: 20060218
  Serious: No
  Sender: FDA-Public Use
  Company Number: 216252

PATIENT
  Age: 59 Year
  Sex: Male

DRUGS (2)
  1. RAPTIVA [Suspect]
     Indication: PSORIASIS
     Dosage: 0.6 ML, 1/WEEK, SUBCUTANEOUS; 0.9 ML, 1/WEEK, SUBCUTANEOUS
     Route: 058
     Dates: start: 20050613, end: 20050613
  2. ALLOPURINOL [Concomitant]

REACTIONS (1)
  - BRONCHITIS [None]
